FAERS Safety Report 9606757 (Version 1)
Quarter: 2013Q4

REPORT INFORMATION
  Report Type: Spontaneous
  Country: US (occurrence: US)
  Receive Date: 20131008
  Receipt Date: 20131008
  Transmission Date: 20140711
  Serious: No
  Sender: FDA-Public Use
  Company Number: US-AMGEN-USASP2013063400

PATIENT
  Age: 75 Year
  Sex: Male

DRUGS (14)
  1. PROLIA [Suspect]
     Indication: OSTEOPOROSIS
     Dosage: UNK
     Route: 065
     Dates: start: 20130826
  2. AZATHIOPRINE [Concomitant]
  3. TESTOSTERONE [Concomitant]
  4. ANDROGEL [Concomitant]
  5. CHOLESTYRAMINE [Concomitant]
  6. LOMOTIL                            /00034001/ [Concomitant]
  7. DOXAZOSIN [Concomitant]
  8. PENTASA [Concomitant]
  9. B12                                /00056201/ [Concomitant]
  10. D3 +K2 [Concomitant]
  11. CALCIUM GLUC+VIT D [Concomitant]
  12. ASPIRIN [Concomitant]
  13. PROBIOTIC                          /06395501/ [Concomitant]
  14. LATANOPROST [Concomitant]

REACTIONS (2)
  - Pain [Unknown]
  - Arthralgia [Unknown]
